FAERS Safety Report 5456130-9 (Version None)
Quarter: 2007Q3

REPORT INFORMATION
  Report Type: 
  Country: None (occurrence: None)
  Receive Date: 20070918
  Receipt Date: 20070912
  Transmission Date: 20080115
  Serious: Yes (Other)
  Sender: FDA-Public Use
  Company Number: US-JNJFOC-20070902563

PATIENT
  Age: 70 Year
  Sex: Female
  Weight: 73.94 kg

DRUGS (5)
  1. EXTRA STRENGTH TYLENOL [Suspect]
     Route: 048
  2. EXTRA STRENGTH TYLENOL [Suspect]
     Indication: PAIN
     Route: 048
  3. ASPIRIN [Concomitant]
     Indication: PROPHYLAXIS
  4. DILANTIN [Concomitant]
     Indication: CONVULSION
  5. PHENOBARBITAL TAB [Concomitant]
     Indication: CONVULSION

REACTIONS (2)
  - RENAL FAILURE [None]
  - RENAL IMPAIRMENT [None]
